FAERS Safety Report 14535372 (Version 6)
Quarter: 2018Q4

REPORT INFORMATION
  Report Type: Report from Study
  Country: AU (occurrence: AU)
  Receive Date: 20180215
  Receipt Date: 20181115
  Transmission Date: 20190204
  Serious: Yes (Other)
  Sender: FDA-Public Use
  Company Number: AU-MYLANLABS-2016M1043871

PATIENT
  Age: 38 Year
  Sex: Female

DRUGS (4)
  1. LEVLEN [Concomitant]
     Active Substance: ETHINYL ESTRADIOL\LEVONORGESTREL
     Indication: PRODUCT USED FOR UNKNOWN INDICATION
     Dosage: 1 DF, AM
  2. CLOZARIL [Suspect]
     Active Substance: CLOZAPINE
     Indication: SCHIZOPHRENIA
     Dosage: UNK
     Route: 048
     Dates: start: 20090722
  3. ATROPT [Concomitant]
     Indication: PRODUCT USED FOR UNKNOWN INDICATION
     Dosage: 1 %, BID
  4. CLOZARIL [Suspect]
     Active Substance: CLOZAPINE
     Dosage: 125 MG, UNK
     Route: 048
     Dates: start: 20150703

REACTIONS (15)
  - Neutrophil count increased [Recovering/Resolving]
  - Dizziness [Not Recovered/Not Resolved]
  - Haematocrit increased [Unknown]
  - C-reactive protein increased [Unknown]
  - Monocyte count increased [Recovered/Resolved]
  - Platelet count increased [Recovered/Resolved]
  - White blood cell count increased [Recovering/Resolving]
  - Vitamin D decreased [Unknown]
  - Lymphocyte count increased [Unknown]
  - Sedation [Unknown]
  - Sinus tachycardia [Recovered/Resolved]
  - Blood triglycerides increased [Unknown]
  - Hypersomnia [Unknown]
  - Blood bilirubin decreased [Unknown]
  - Haemoglobin increased [Unknown]

NARRATIVE: CASE EVENT DATE: 20121203
